FAERS Safety Report 25436803 (Version 4)
Quarter: 2025Q3

REPORT INFORMATION
  Report Type: Spontaneous
  Country: US (occurrence: US)
  Receive Date: 20250615
  Receipt Date: 20250721
  Transmission Date: 20251021
  Serious: No
  Sender: ELI LILLY AND COMPANY
  Company Number: US-ELI_LILLY_AND_COMPANY-US202506009087

PATIENT
  Age: 20 Year
  Sex: Male

DRUGS (2)
  1. TRULICITY [Suspect]
     Active Substance: DULAGLUTIDE
     Indication: Insulin resistance
     Route: 058
     Dates: start: 20250122, end: 20250630
  2. TRULICITY [Suspect]
     Active Substance: DULAGLUTIDE
     Indication: Type 2 diabetes mellitus

REACTIONS (6)
  - Blood triglycerides increased [Unknown]
  - Weight increased [Unknown]
  - Metabolic syndrome [Unknown]
  - Feeling abnormal [Unknown]
  - Autism spectrum disorder [Unknown]
  - Mental disorder [Unknown]
